FAERS Safety Report 7771423-8 (Version None)
Quarter: 2011Q3

REPORT INFORMATION
  Report Type: 
  Country: None (occurrence: None)
  Receive Date: 20110922
  Receipt Date: 20100915
  Transmission Date: 20111222
  Serious: Yes (Hospitalization)
  Sender: FDA-Public Use
  Company Number: US-ASTRAZENECA-2010SE43532

PATIENT
  Sex: Male
  Weight: 115.2 kg

DRUGS (5)
  1. PRAVASTATIN SODIUM [Concomitant]
     Indication: HYPERCHOLESTEROLAEMIA
  2. HYDROCHLORIC ACID [Concomitant]
  3. SEROQUEL [Suspect]
     Indication: BIPOLAR DISORDER
     Route: 048
  4. DEPAKOTE ER [Concomitant]
  5. NORVASC [Concomitant]

REACTIONS (2)
  - HYPERTENSION [None]
  - LUNG DISORDER [None]
